FAERS Safety Report 25307812 (Version 2)
Quarter: 2025Q2

REPORT INFORMATION
  Report Type: Report from Study
  Country: BR (occurrence: BR)
  Receive Date: 20250513
  Receipt Date: 20250516
  Transmission Date: 20250716
  Serious: Yes (Other)
  Sender: MYLAN
  Company Number: BR-MYLANLABS-2025M1039511

PATIENT
  Age: 82 Year
  Sex: Female
  Weight: 65 kg

DRUGS (24)
  1. PREGABALIN [Suspect]
     Active Substance: PREGABALIN
     Indication: Pain
  2. PREGABALIN [Suspect]
     Active Substance: PREGABALIN
     Route: 065
  3. PREGABALIN [Suspect]
     Active Substance: PREGABALIN
     Route: 065
  4. PREGABALIN [Suspect]
     Active Substance: PREGABALIN
  5. DIETHYLAMINE SALICYLATE\ESCIN [Suspect]
     Active Substance: DIETHYLAMINE SALICYLATE\ESCIN
     Indication: Pain
     Dosage: UNK, BID (TWICE A DAY, IN THE MORNING AND BEFORE GOING TO BED)
  6. DIETHYLAMINE SALICYLATE\ESCIN [Suspect]
     Active Substance: DIETHYLAMINE SALICYLATE\ESCIN
     Indication: Arthralgia
     Dosage: UNK, BID (TWICE A DAY, IN THE MORNING AND BEFORE GOING TO BED)
     Route: 061
  7. DIETHYLAMINE SALICYLATE\ESCIN [Suspect]
     Active Substance: DIETHYLAMINE SALICYLATE\ESCIN
     Indication: Peripheral swelling
     Dosage: UNK, BID (TWICE A DAY, IN THE MORNING AND BEFORE GOING TO BED)
     Route: 061
  8. DIETHYLAMINE SALICYLATE\ESCIN [Suspect]
     Active Substance: DIETHYLAMINE SALICYLATE\ESCIN
     Dosage: UNK, BID (TWICE A DAY, IN THE MORNING AND BEFORE GOING TO BED)
  9. Arpadol [Concomitant]
     Indication: Knee operation
  10. Arpadol [Concomitant]
     Route: 065
  11. Arpadol [Concomitant]
     Route: 065
  12. Arpadol [Concomitant]
  13. LOSARTAN [Concomitant]
     Active Substance: LOSARTAN
  14. LOSARTAN [Concomitant]
     Active Substance: LOSARTAN
     Route: 065
  15. LOSARTAN [Concomitant]
     Active Substance: LOSARTAN
     Route: 065
  16. LOSARTAN [Concomitant]
     Active Substance: LOSARTAN
  17. SIMVASTATIN [Concomitant]
     Active Substance: SIMVASTATIN
  18. SIMVASTATIN [Concomitant]
     Active Substance: SIMVASTATIN
     Route: 065
  19. SIMVASTATIN [Concomitant]
     Active Substance: SIMVASTATIN
     Route: 065
  20. SIMVASTATIN [Concomitant]
     Active Substance: SIMVASTATIN
  21. NITRENDIPINE [Concomitant]
     Active Substance: NITRENDIPINE
  22. NITRENDIPINE [Concomitant]
     Active Substance: NITRENDIPINE
     Route: 065
  23. NITRENDIPINE [Concomitant]
     Active Substance: NITRENDIPINE
     Route: 065
  24. NITRENDIPINE [Concomitant]
     Active Substance: NITRENDIPINE

REACTIONS (5)
  - Neuropathy peripheral [Not Recovered/Not Resolved]
  - Renal disorder [Not Recovered/Not Resolved]
  - Constipation [Recovered/Resolved]
  - Fall [Unknown]
  - Intentional product misuse [Not Recovered/Not Resolved]

NARRATIVE: CASE EVENT DATE: 20250427
